FAERS Safety Report 7463912-0 (Version None)
Quarter: 2011Q2

REPORT INFORMATION
  Report Type: 
  Country: None (occurrence: None)
  Receive Date: 20110506
  Receipt Date: 20110426
  Transmission Date: 20111010
  Serious: Yes (Hospitalization)
  Sender: FDA-Public Use
  Company Number: PHHO2011US07513

PATIENT
  Sex: Female
  Weight: 64.399 kg

DRUGS (11)
  1. AFINITOR [Suspect]
     Indication: ACUTE MYELOID LEUKAEMIA
     Dosage: 5 MG, DAY 1, EVERY OTHER DAY 8-28
     Route: 048
     Dates: start: 20110414, end: 20110421
  2. CGP 41251 [Suspect]
     Indication: ACUTE MYELOID LEUKAEMIA
     Dosage: 50 MG, DAYS 2- 28
     Route: 048
     Dates: start: 20110415, end: 20110421
  3. CIPROFLOXACIN [Concomitant]
  4. METOPROLOL TARTRATE [Concomitant]
  5. OMEPRAZOLE [Concomitant]
  6. LORAZEPAM [Concomitant]
  7. LISINOPRIL [Concomitant]
  8. VALACICLOVIR [Concomitant]
  9. CGP 41251 [Suspect]
     Dosage: 50 MG, DAYS 2- 28
     Route: 048
     Dates: start: 20110425
  10. PROCHLORPERAZINE MALEATE [Concomitant]
  11. AFINITOR [Suspect]
     Dosage: 50 MG, DAY 1, EVERY OTHER DAY 8-28
     Route: 048
     Dates: start: 20110425

REACTIONS (4)
  - PYREXIA [None]
  - NEUTROPENIA [None]
  - HYPERTENSION [None]
  - PANCREATITIS [None]
